FAERS Safety Report 11114594 (Version 2)
Quarter: 2015Q3

REPORT INFORMATION
  Report Type: Spontaneous
  Country: US (occurrence: US)
  Receive Date: 20150515
  Receipt Date: 20150810
  Transmission Date: 20151125
  Serious: No
  Sender: FDA-Public Use
  Company Number: US-009507513-1505USA006051

PATIENT
  Age: 27 Year
  Sex: Female
  Weight: 65.76 kg

DRUGS (3)
  1. NEXPLANON [Suspect]
     Active Substance: ETONOGESTREL
     Dosage: UNK
     Route: 059
     Dates: start: 20150519
  2. CYCLOBENZAPRINE HYDROCHLORIDE. [Concomitant]
     Active Substance: CYCLOBENZAPRINE HYDROCHLORIDE
  3. NEXPLANON [Suspect]
     Active Substance: ETONOGESTREL
     Indication: CONTRACEPTION
     Dosage: 1 ROD EVERY 3 YEARS
     Route: 059
     Dates: start: 201411, end: 20150517

REACTIONS (6)
  - Device expulsion [Recovered/Resolved]
  - Medical device site discomfort [Recovering/Resolving]
  - Implant site infection [Recovering/Resolving]
  - Implant site pain [Recovering/Resolving]
  - Menstruation irregular [Recovering/Resolving]
  - Implant site erythema [Unknown]

NARRATIVE: CASE EVENT DATE: 20150517
